FAERS Safety Report 9299321 (Version 2)
Quarter: 2013Q3

REPORT INFORMATION
  Report Type: Spontaneous
  Country: BE (occurrence: BE)
  Receive Date: 20130520
  Receipt Date: 20130708
  Transmission Date: 20140515
  Serious: Yes (Hospitalization)
  Sender: FDA-Public Use
  Company Number: BE-GILEAD-2013-0075420

PATIENT
  Age: 24 Year
  Sex: Male

DRUGS (1)
  1. EVIPLERA [Suspect]
     Indication: HIV INFECTION
     Dosage: UNK
     Dates: start: 201208, end: 201305

REACTIONS (2)
  - Pyrexia [Unknown]
  - Rash [Recovered/Resolved]
